FAERS Safety Report 8405193-7 (Version None)
Quarter: 2012Q2

REPORT INFORMATION
  Report Type: 
  Country: None (occurrence: None)
  Receive Date: 20120603
  Receipt Date: 20120524
  Transmission Date: 20120825
  Serious: No
  Sender: FDA-Public Use
  Company Number: JP-VERTEX PHARMACEUTICALS INC.-AE-2012-007345

PATIENT
  Age: 56 Year
  Sex: Male

DRUGS (4)
  1. URSO 250 [Concomitant]
     Route: 048
  2. TELAVIC (TELAPREVIR) [Suspect]
     Indication: HEPATITIS C
     Route: 048
     Dates: start: 20120509, end: 20120516
  3. PEG-INTRON [Concomitant]
     Route: 058
     Dates: start: 20120509, end: 20120516
  4. REBETOL [Concomitant]
     Route: 048
     Dates: start: 20120509, end: 20120516

REACTIONS (3)
  - SKIN DISORDER [None]
  - RASH [None]
  - ERYTHEMA [None]
